FAERS Safety Report 12692935 (Version 5)
Quarter: 2017Q3

REPORT INFORMATION
  Report Type: Spontaneous
  Country: US (occurrence: US)
  Receive Date: 20160829
  Receipt Date: 20170703
  Transmission Date: 20171127
  Serious: Yes (Hospitalization)
  Sender: FDA-Public Use
  Company Number: US-AUROBINDO-AUR-APU-2016-10565

PATIENT
  Age: 81 Year
  Sex: Female
  Weight: 81.6 kg

DRUGS (3)
  1. LEVOFLOXACIN TABLETS 500MG [Suspect]
     Active Substance: LEVOFLOXACIN
     Indication: PNEUMONIA
     Dosage: 500 MG, ONCE A DAY
     Route: 065
     Dates: start: 20160322, end: 20160331
  2. TYLENOL [Concomitant]
     Active Substance: ACETAMINOPHEN
     Indication: PRODUCT USED FOR UNKNOWN INDICATION
  3. LEVOFLOXACIN TABLETS 500MG [Suspect]
     Active Substance: LEVOFLOXACIN
     Indication: INFLUENZA

REACTIONS (24)
  - Neuropathy peripheral [Not Recovered/Not Resolved]
  - Dyspnoea [Recovered/Resolved]
  - Walking aid user [Recovered/Resolved]
  - Toxicity to various agents [Unknown]
  - Erythema [Unknown]
  - Vitamin B12 decreased [Not Recovered/Not Resolved]
  - Joint crepitation [Not Recovered/Not Resolved]
  - Blood pressure increased [Recovered/Resolved]
  - Palpitations [Recovered/Resolved]
  - Neck pain [Not Recovered/Not Resolved]
  - Gait disturbance [Recovered/Resolved]
  - Arthralgia [Recovering/Resolving]
  - Asthenia [Recovered/Resolved]
  - Drug hypersensitivity [Not Recovered/Not Resolved]
  - Candida infection [Recovered/Resolved]
  - Dizziness [Recovered/Resolved]
  - Contusion [Not Recovered/Not Resolved]
  - Heart rate increased [Recovered/Resolved]
  - Chondropathy [Not Recovered/Not Resolved]
  - Syncope [Recovered/Resolved]
  - Muscle spasms [Not Recovered/Not Resolved]
  - Muscular weakness [Recovered/Resolved]
  - Fatigue [Recovered/Resolved]
  - Myalgia [Not Recovered/Not Resolved]

NARRATIVE: CASE EVENT DATE: 20160401
